FAERS Safety Report 26005520 (Version 1)
Quarter: 2025Q4

REPORT INFORMATION
  Report Type: Spontaneous
  Country: US (occurrence: US)
  Receive Date: 20251106
  Receipt Date: 20251106
  Transmission Date: 20260117
  Serious: No
  Sender: CELLTRION
  Company Number: US-CELLTRION INC.-2025US028675

PATIENT

DRUGS (1)
  1. ZYMFENTRA [Suspect]
     Active Substance: INFLIXIMAB-DYYB
     Indication: Colitis ulcerative
     Dosage: 120 MG EVERY OTHER WEEK
     Route: 058
     Dates: start: 20250801

REACTIONS (6)
  - Device issue [Not Recovered/Not Resolved]
  - Device delivery system issue [Unknown]
  - Device mechanical issue [Unknown]
  - Device malfunction [Unknown]
  - Incorrect dose administered by device [Not Recovered/Not Resolved]
  - Therapy interrupted [Not Recovered/Not Resolved]

NARRATIVE: CASE EVENT DATE: 20250801
